FAERS Safety Report 6936384-X (Version None)
Quarter: 2010Q3

REPORT INFORMATION
  Report Type: 
  Country: None (occurrence: None)
  Receive Date: 20100818
  Receipt Date: 20100804
  Transmission Date: 20110219
  Serious: Yes (Hospitalization, Other)
  Sender: FDA-Public Use
  Company Number: 1-23156004

PATIENT
  Age: 57 Year
  Sex: Male
  Weight: 131.7246 kg

DRUGS (25)
  1. SANTYL [Suspect]
     Indication: WOUND
     Dosage: 250 UNITS/G, 2 TIMES A DAY, TOPICAL
     Route: 061
     Dates: start: 20100602, end: 20100614
  2. VANCOMYCIN [Suspect]
     Indication: OSTEOMYELITIS
     Dosage: INTRAVENOUS
     Route: 042
     Dates: start: 20100501, end: 20100607
  3. VANCOMYCIN [Suspect]
     Indication: OSTEOMYELITIS
     Dosage: INTRAVENOUS
     Route: 042
     Dates: start: 20100623, end: 20100627
  4. DORIPENNEM INJECTION [Suspect]
     Indication: OSTEOMYELITIS
     Dosage: INTRAVENOUS
     Route: 042
     Dates: start: 20100527, end: 20100614
  5. PROSTAT-64 (PROTEIN SUPPLEMENT) [Suspect]
     Indication: MALNUTRITION
     Dosage: ORAL
     Route: 048
     Dates: start: 20100527, end: 20100610
  6. AMIODIPINE [Concomitant]
  7. METOPROLOL SUCCINATE [Concomitant]
  8. SPIRONOLACTONE [Concomitant]
  9. TAMSULOSIN HCL [Concomitant]
  10. ZINC SULFATE [Concomitant]
  11. AMIODARONE [Concomitant]
  12. FUROSEMIDE [Concomitant]
  13. MULTIVITAMIN WITH MINERALS [Concomitant]
  14. OMEPRAZOLE [Concomitant]
  15. ACETAMINOPHEN [Concomitant]
  16. DIGOXIN [Concomitant]
  17. BISACODYL [Concomitant]
  18. MILK OF MAGNESIA SUSPENSION [Concomitant]
  19. LISINOPRIL [Concomitant]
  20. FERROUS SULFATE [Concomitant]
  21. LEVOTHYROXINE [Concomitant]
  22. ASCORBIC ACID [Concomitant]
  23. LEVALBUTEROL HCL [Concomitant]
  24. WARFARIN SODIUM [Concomitant]
  25. NYSTATIN [Concomitant]

REACTIONS (8)
  - CHRONIC RESPIRATORY FAILURE [None]
  - CONDITION AGGRAVATED [None]
  - DERMATITIS ALLERGIC [None]
  - DRY SKIN [None]
  - MALNUTRITION [None]
  - NEPHRITIS [None]
  - RENAL FAILURE ACUTE [None]
  - STEVENS-JOHNSON SYNDROME [None]
